FAERS Safety Report 5684269-1 (Version None)
Quarter: 2008Q1

REPORT INFORMATION
  Report Type: 
  Country: None (occurrence: None)
  Receive Date: 20080328
  Receipt Date: 20080317
  Transmission Date: 20080703
  Serious: Yes (Other)
  Sender: FDA-Public Use
  Company Number: AT-ASTRAZENECA-2008PK00624

PATIENT
  Age: 67 Year
  Sex: Male

DRUGS (2)
  1. CASODEX [Suspect]
     Indication: PROSTATE CANCER
     Route: 048
     Dates: start: 20050101, end: 20061201
  2. ZOLADEX [Suspect]
     Indication: PROSTATE CANCER
     Route: 058
     Dates: start: 20050101, end: 20061201

REACTIONS (8)
  - DEPRESSION [None]
  - HOT FLUSH [None]
  - HYPERTENSION [None]
  - IMMUNE SYSTEM DISORDER [None]
  - MOOD SWINGS [None]
  - MYALGIA [None]
  - RESTLESSNESS [None]
  - TINNITUS [None]
